FAERS Safety Report 14035211 (Version 1)
Quarter: 2017Q4

REPORT INFORMATION
  Report Type: Spontaneous
  Country: ES (occurrence: ES)
  Receive Date: 20171003
  Receipt Date: 20171003
  Transmission Date: 20180321
  Serious: Yes (Hospitalization, Other)
  Sender: FDA-Public Use
  Company Number: ES-NAPPMUNDI-GBR-2017-0049313

PATIENT
  Age: 81 Year
  Sex: Male

DRUGS (12)
  1. SIMVASTATIN. [Concomitant]
     Active Substance: SIMVASTATIN
     Dosage: 20 MG, DAILY
  2. ELIGARD [Concomitant]
     Active Substance: LEUPROLIDE ACETATE
     Route: 058
  3. FUROSEMIDA                         /00032601/ [Suspect]
     Active Substance: FUROSEMIDE
     Indication: HYPERTENSION
     Dosage: 40 MG, DAILY
     Route: 048
     Dates: start: 2012, end: 20170905
  4. CLOPIDROGEL SANDOZ [Concomitant]
     Active Substance: CLOPIDOGREL BISULFATE
     Dosage: 75 MG, DAILY
  5. ENALAPRIL + HIDROCLOROTIAZIDA [Concomitant]
     Dosage: 1 DF, DAILY
  6. SINTROM [Concomitant]
     Active Substance: ACENOCOUMAROL
     Dosage: ACCORDING TO SCHEDULE
  7. CARVEDILOL. [Concomitant]
     Active Substance: CARVEDILOL
     Dosage: 6.25 MG, BID
  8. DUODART [Concomitant]
     Active Substance: DUTASTERIDE\TAMSULOSIN
     Dosage: 1 DF, DAILY
  9. MST CONTINUS [Suspect]
     Active Substance: MORPHINE SULFATE
     Indication: PRODUCT USED FOR UNKNOWN INDICATION
     Dosage: 5 MG, DAILY [STRENGTH 5MG]
     Route: 048
     Dates: start: 20170814, end: 20170905
  10. AMIODARONE [Concomitant]
     Active Substance: AMIODARONE
     Dosage: 200 MG, DAILY
  11. ACFOL [Concomitant]
     Active Substance: FOLIC ACID
     Dosage: 1 DF, DAILY
  12. OMEPRAZOLE. [Concomitant]
     Active Substance: OMEPRAZOLE
     Dosage: 20 MG, DAILY

REACTIONS (4)
  - Anaemia [Unknown]
  - Acute kidney injury [Unknown]
  - Toxicity to various agents [Unknown]
  - Confusional state [Recovered/Resolved]

NARRATIVE: CASE EVENT DATE: 20170905
